FAERS Safety Report 4497453-X (Version None)
Quarter: 2004Q4

REPORT INFORMATION
  Report Type: 
  Country: None (occurrence: None)
  Receive Date: 20041110
  Receipt Date: 20041007
  Transmission Date: 20050328
  Serious: Yes (Life-Threatening, Hospitalization, Disabling)
  Sender: FDA-Public Use
  Company Number: US-MERCK-0410USA01116

PATIENT
  Age: 67 Year
  Sex: Male

DRUGS (8)
  1. VIOXX [Suspect]
     Indication: FIBROMYALGIA
     Route: 048
     Dates: start: 19991001
  2. ASACOL [Concomitant]
     Route: 065
  3. LIBRAX CAPSULES [Concomitant]
     Route: 065
  4. NEXIUM [Concomitant]
     Route: 065
  5. FLOMAX [Concomitant]
     Route: 065
  6. ULTRAM [Concomitant]
     Route: 065
  7. TRANXENE [Concomitant]
     Route: 065
  8. REMERON [Concomitant]
     Route: 065

REACTIONS (2)
  - CHEST PAIN [None]
  - CORONARY ARTERY DISEASE [None]
